FAERS Safety Report 10096046 (Version 2)
Quarter: 2014Q2

REPORT INFORMATION
  Report Type: Spontaneous
  Country: US (occurrence: US)
  Receive Date: 20140422
  Receipt Date: 20140509
  Transmission Date: 20141212
  Serious: Yes (Other)
  Sender: FDA-Public Use
  Company Number: US-BAYER-2014-056542

PATIENT
  Age: 40 Year
  Sex: Female

DRUGS (2)
  1. OCELLA [Suspect]
  2. YASMIN [Suspect]

REACTIONS (1)
  - Thrombophlebitis superficial [None]
